FAERS Safety Report 6641434-4 (Version None)
Quarter: 2010Q1

REPORT INFORMATION
  Report Type: 
  Country: None (occurrence: None)
  Receive Date: 20100318
  Receipt Date: 20100215
  Transmission Date: 20100710
  Serious: No
  Sender: FDA-Public Use
  Company Number: US-BAYER-201012088BCC

PATIENT
  Sex: Female
  Weight: 57 kg

DRUGS (6)
  1. ALEVE (CAPLET) [Suspect]
     Indication: NEURALGIA
     Dosage: TOTAL DAILY DOSE: 220 MG  UNIT DOSE: 220 MG
     Route: 048
     Dates: start: 20091224
  2. TRAZODONE HCL [Concomitant]
     Dosage: TOTAL DAILY DOSE: 50 MG  UNIT DOSE: 50 MG
     Route: 048
     Dates: start: 20010901
  3. TRAMADOL HCL [Concomitant]
     Route: 065
     Dates: start: 20010901
  4. ATENOLOL [Concomitant]
     Route: 065
     Dates: start: 20010901
  5. TRIAMT/HZT [Concomitant]
     Route: 065
     Dates: start: 20010901
  6. ENALAPRIL MALEATE [Concomitant]
     Route: 065
     Dates: start: 20010901

REACTIONS (1)
  - INSOMNIA [None]
